FAERS Safety Report 5521363-X (Version None)
Quarter: 2007Q4

REPORT INFORMATION
  Report Type: 
  Country: None (occurrence: None)
  Receive Date: 20071119
  Receipt Date: 20070522
  Transmission Date: 20080405
  Serious: No
  Sender: FDA-Public Use
  Company Number: US-BOEHRINGER INGELHEIM PHARMACEUTICALS, INC.-2007-BP-06927BP

PATIENT
  Sex: Female

DRUGS (3)
  1. ZANTAC 75 [Suspect]
     Indication: GASTROOESOPHAGEAL REFLUX DISEASE
     Route: 048
     Dates: start: 20070401
  2. PRED FORTE [Concomitant]
     Indication: EYE DISORDER
  3. ACULAR [Concomitant]
     Indication: EYE DISORDER

REACTIONS (1)
  - FREQUENT BOWEL MOVEMENTS [None]
